FAERS Safety Report 7399352-2 (Version None)
Quarter: 2011Q1

REPORT INFORMATION
  Report Type: 
  Country: None (occurrence: None)
  Receive Date: 20110329
  Receipt Date: 20110315
  Transmission Date: 20110831
  Serious: Yes (Hospitalization)
  Sender: FDA-Public Use
  Company Number: 2011SP012064

PATIENT
  Age: 32 Year
  Sex: Female

DRUGS (5)
  1. TRIELLA [Concomitant]
  2. SUSTIVA [Concomitant]
  3. GARDENAL (PHENOBARBITAL) [Suspect]
     Indication: EPILEPSY
  4. CERAZETTE (DESOGESTREL /00754001/) [Suspect]
     Indication: ORAL CONTRACEPTION
     Dosage: 1 DF;QD;PO
     Route: 048
     Dates: start: 20001201, end: 20020701
  5. TRUVADA [Concomitant]

REACTIONS (4)
  - ACTIVATED PARTIAL THROMBOPLASTIN TIME SHORTENED [None]
  - COAGULATION FACTOR VIII LEVEL INCREASED [None]
  - DEEP VEIN THROMBOSIS [None]
  - DRUG INTERACTION [None]
